FAERS Safety Report 10210919 (Version 1)
Quarter: 2014Q2

REPORT INFORMATION
  Report Type: Report from Study
  Country: US (occurrence: US)
  Receive Date: 20140602
  Receipt Date: 20140602
  Transmission Date: 20141212
  Serious: Yes (Hospitalization)
  Sender: FDA-Public Use
  Company Number: US-ABBVIE-14P-163-1240784-00

PATIENT
  Age: 32 Year
  Sex: Female
  Weight: 85.81 kg

DRUGS (4)
  1. RITONAVIR [Suspect]
     Indication: HIV INFECTION
     Route: 048
     Dates: start: 20100127, end: 20140505
  2. ATAZANAVIR SULFATE [Concomitant]
     Indication: HIV INFECTION
     Route: 048
     Dates: start: 20100627, end: 20140505
  3. EMTRICITABINE/TENOFOVIR DISOPROXIL FUMARATE [Concomitant]
     Indication: HIV INFECTION
     Route: 048
     Dates: start: 20100127, end: 20140505
  4. IRON [Concomitant]
     Indication: ANAEMIA
     Route: 048

REACTIONS (2)
  - Liver injury [Recovering/Resolving]
  - Bile duct stone [Recovering/Resolving]
